FAERS Safety Report 8206976-9 (Version None)
Quarter: 2012Q1

REPORT INFORMATION
  Report Type: 
  Country: None (occurrence: None)
  Receive Date: 20120314
  Receipt Date: 20120302
  Transmission Date: 20120608
  Serious: Yes (Hospitalization, Other)
  Sender: FDA-Public Use
  Company Number: US-ELI_LILLY_AND_COMPANY-US201202001876

PATIENT
  Sex: Female
  Weight: 77.098 kg

DRUGS (1)
  1. EVISTA [Suspect]
     Dosage: 1 DF, QD
     Route: 048
     Dates: end: 20100401

REACTIONS (2)
  - PULMONARY EMBOLISM [None]
  - ABDOMINOPLASTY [None]
